FAERS Safety Report 12927922 (Version 5)
Quarter: 2017Q1

REPORT INFORMATION
  Report Type: Report from Study
  Country: US (occurrence: US)
  Receive Date: 20161110
  Receipt Date: 20170331
  Transmission Date: 20170428
  Serious: Yes (Hospitalization)
  Sender: FDA-Public Use
  Company Number: PHHO2016US016054

PATIENT
  Age: 33 Year
  Sex: Male
  Weight: 90.7 kg

DRUGS (2)
  1. AMOXICILLIN. [Concomitant]
     Active Substance: AMOXICILLIN
     Indication: TOOTH INFECTION
     Dosage: 500 MG, TID
     Route: 048
     Dates: start: 20161006, end: 20161016
  2. AIN457 [Suspect]
     Active Substance: SECUKINUMAB
     Indication: PSORIASIS
     Dosage: 150 MG/ML, EVERY 4 WEEKS
     Route: 058
     Dates: start: 20130131, end: 20161006

REACTIONS (2)
  - Lung disorder [Recovering/Resolving]
  - Sepsis [Recovered/Resolved]

NARRATIVE: CASE EVENT DATE: 20161024
